FAERS Safety Report 11149212 (Version 1)
Quarter: 2015Q2

REPORT INFORMATION
  Report Type: Spontaneous
  Country: FI (occurrence: FI)
  Receive Date: 20150529
  Receipt Date: 20150529
  Transmission Date: 20150821
  Serious: Yes (Other)
  Sender: FDA-Public Use
  Company Number: FI-GLAXOSMITHKLINE-FI2015GSK056233

PATIENT
  Sex: Female

DRUGS (4)
  1. SURMONTIL [Concomitant]
     Active Substance: TRIMIPRAMINE MALEATE
     Indication: INSOMNIA
     Dosage: UNK
     Route: 048
     Dates: start: 2003
  2. VOXRA [Suspect]
     Active Substance: BUPROPION HYDROCHLORIDE
     Indication: DEPRESSION
     Dosage: 150 MG, UNK
     Route: 048
     Dates: start: 20150204, end: 20150225
  3. ALPROX [Concomitant]
     Active Substance: ALPRAZOLAM
     Indication: ANXIETY
     Dosage: UNK
     Route: 048
     Dates: start: 20040401
  4. TENOX (TEMAZEPAM) [Concomitant]
     Indication: INSOMNIA
     Dosage: 20 MG, QD
     Route: 048
     Dates: start: 2003

REACTIONS (3)
  - Arrhythmia [Recovered/Resolved]
  - Fatigue [Recovered/Resolved]
  - Condition aggravated [Unknown]
